FAERS Safety Report 9623819 (Version 3)
Quarter: 2013Q4

REPORT INFORMATION
  Report Type: Report from Study
  Country: US (occurrence: US)
  Receive Date: 20131015
  Receipt Date: 20131224
  Transmission Date: 20140711
  Serious: Yes (Hospitalization)
  Sender: FDA-Public Use
  Company Number: US-ACTELION-A-US2013-89594

PATIENT
  Age: 67 Year
  Sex: Male

DRUGS (1)
  1. VELETRI [Suspect]
     Indication: PULMONARY ARTERIAL HYPERTENSION
     Dosage: 20 NG/KG, PER MIN
     Route: 042
     Dates: start: 20130129

REACTIONS (10)
  - Weight decreased [Unknown]
  - Catheter site infection [Recovered/Resolved]
  - Sepsis [Recovered/Resolved]
  - Decreased appetite [Unknown]
  - Abdominal pain upper [Unknown]
  - Device dislocation [Recovered/Resolved]
  - Pseudomonas test positive [Recovered/Resolved]
  - Blood culture positive [Recovered/Resolved]
  - Catheter culture positive [Recovered/Resolved]
  - Catheter site inflammation [Recovered/Resolved]
